FAERS Safety Report 9399241 (Version 2)
Quarter: 2013Q4

REPORT INFORMATION
  Report Type: Spontaneous
  Country: CA (occurrence: None)
  Receive Date: 20130710
  Receipt Date: 20131022
  Transmission Date: 20140711
  Serious: Yes (Other)
  Sender: FDA-Public Use
  Company Number: 2013-002185

PATIENT
  Age: 84 Year
  Sex: 0

DRUGS (8)
  1. ACTONEL (RISEDRONATE SODIUM) TABLET [Suspect]
  2. PROLIA (DENOSUMAB) [Suspect]
     Route: 058
  3. ALENDRONATE (ALENDRONATE SODIUM) [Suspect]
     Route: 048
  4. EVISTA (RTALOXIFENE HYDROCHLORIDE) [Concomitant]
  5. MIACALCIN (CALCITONIN, SALMON) [Concomitant]
  6. FORTEO (TERIPARATIDE) [Concomitant]
  7. HORMONES [Concomitant]
  8. DIDROCAL (CALCIUM CARBONATE, ETIDRONATE DISODIUM) [Concomitant]

REACTIONS (4)
  - Renal failure [None]
  - Osteoporosis [None]
  - Wrist fracture [None]
  - Traumatic fracture [None]
